FAERS Safety Report 9241180 (Version 1)
Quarter: 2013Q2

REPORT INFORMATION
  Report Type: Spontaneous
  Country: CA (occurrence: CA)
  Receive Date: 20130419
  Receipt Date: 20130419
  Transmission Date: 20140414
  Serious: Yes (Other)
  Sender: FDA-Public Use
  Company Number: CA-COVIDIEN/TYCO HEALTHCARE/MALLINCKRODT-T201301662

PATIENT
  Age: 20 Year
  Sex: Male
  Weight: 79.37 kg

DRUGS (2)
  1. GALLIUM CITRATE (GA 67) [Suspect]
     Indication: PRODUCT USED FOR UNKNOWN INDICATION
     Dosage: 2.6 ML, SINGLE
     Route: 065
  2. NEURONTIN [Concomitant]
     Indication: PRODUCT USED FOR UNKNOWN INDICATION
     Dosage: UNK

REACTIONS (3)
  - Pruritus [Unknown]
  - Skin oedema [Unknown]
  - Rash [Unknown]
